FAERS Safety Report 5372473-1 (Version None)
Quarter: 2007Q2

REPORT INFORMATION
  Report Type: 
  Country: None (occurrence: None)
  Receive Date: 20070620
  Receipt Date: 20070427
  Transmission Date: 20071010
  Serious: No
  Sender: FDA-Public Use
  Company Number: 2007RL000186

PATIENT
  Age: 67 Year
  Sex: Female
  Weight: 65.7716 kg

DRUGS (8)
  1. OMACOR [Suspect]
     Indication: BLOOD TRIGLYCERIDES INCREASED
     Dosage: 4 GM;QD;PO
     Route: 048
     Dates: start: 20060101
  2. BENICAR [Concomitant]
  3. DOXAZOSIN MESYLATE [Concomitant]
  4. NORVASC [Concomitant]
  5. WELCHOL [Concomitant]
  6. FOLIC ACID [Concomitant]
  7. MULTI-VITAMIN [Concomitant]
  8. CALCIUM CHLORIDE [Concomitant]

REACTIONS (2)
  - EYE INFLAMMATION [None]
  - PERIORBITAL HAEMATOMA [None]
